FAERS Safety Report 5023319-2 (Version None)
Quarter: 2006Q2

REPORT INFORMATION
  Report Type: 
  Country: None (occurrence: None)
  Receive Date: 20060606
  Receipt Date: 20060525
  Transmission Date: 20061013
  Serious: Yes (Hospitalization)
  Sender: FDA-Public Use
  Company Number: 2006BH010382

PATIENT
  Sex: Female

DRUGS (30)
  1. LORAZEPAM [Suspect]
     Indication: SCHIZOPHRENIA, UNDIFFERENTIATED TYPE
     Dosage: SEE IMAGE
     Dates: start: 20051129, end: 20051130
  2. LORAZEPAM [Suspect]
     Indication: SCHIZOPHRENIA, UNDIFFERENTIATED TYPE
     Dosage: SEE IMAGE
     Dates: start: 20051204, end: 20051205
  3. LORAZEPAM [Suspect]
     Indication: SCHIZOPHRENIA, UNDIFFERENTIATED TYPE
     Dosage: SEE IMAGE
     Dates: start: 20051206, end: 20051208
  4. LORAZEPAM [Suspect]
     Indication: SCHIZOPHRENIA, UNDIFFERENTIATED TYPE
     Dosage: SEE IMAGE
     Dates: start: 20060103, end: 20060104
  5. LORAZEPAM [Suspect]
     Indication: SCHIZOPHRENIA, UNDIFFERENTIATED TYPE
     Dosage: SEE IMAGE
     Dates: start: 20060130, end: 20060217
  6. LORAZEPAM [Suspect]
     Indication: SCHIZOPHRENIA, UNDIFFERENTIATED TYPE
     Dosage: SEE IMAGE
     Dates: start: 20060218, end: 20060301
  7. LORAZEPAM [Suspect]
     Indication: SCHIZOPHRENIA, UNDIFFERENTIATED TYPE
     Dosage: SEE IMAGE
     Dates: start: 20060302, end: 20060306
  8. LORAZEPAM [Suspect]
     Indication: SCHIZOPHRENIA, UNDIFFERENTIATED TYPE
     Dosage: SEE IMAGE
     Dates: start: 20051201
  9. LORAZEPAM [Suspect]
     Indication: SCHIZOPHRENIA, UNDIFFERENTIATED TYPE
     Dosage: SEE IMAGE
     Dates: start: 20051202
  10. LORAZEPAM [Suspect]
     Indication: SCHIZOPHRENIA, UNDIFFERENTIATED TYPE
     Dosage: SEE IMAGE
     Dates: start: 20051203
  11. LORAZEPAM [Suspect]
     Indication: SCHIZOPHRENIA, UNDIFFERENTIATED TYPE
     Dosage: SEE IMAGE
     Dates: start: 20060102
  12. RISPERDAL [Suspect]
     Dosage: 3 MG; 6 MG; 4 MG; 4 MG; 6 MG; 4 MG
     Dates: start: 20051130, end: 20051204
  13. RISPERDAL [Suspect]
     Dosage: 3 MG; 6 MG; 4 MG; 4 MG; 6 MG; 4 MG
     Dates: start: 20051205, end: 20051216
  14. RISPERDAL [Suspect]
     Dosage: 3 MG; 6 MG; 4 MG; 4 MG; 6 MG; 4 MG
     Dates: start: 20060103, end: 20060116
  15. RISPERDAL [Suspect]
     Dosage: 3 MG; 6 MG; 4 MG; 4 MG; 6 MG; 4 MG
     Dates: start: 20060117, end: 20060306
  16. RISPERDAL [Suspect]
     Dosage: 3 MG; 6 MG; 4 MG; 4 MG; 6 MG; 4 MG
     Dates: start: 20051129
  17. RISPERDAL [Suspect]
     Dosage: 3 MG; 6 MG; 4 MG; 4 MG; 6 MG; 4 MG
     Dates: start: 20060102
  18. MIRTAZAPINE [Suspect]
     Dosage: 30 MG
     Dates: start: 20051207, end: 20051216
  19. MIRTAZAPINE [Suspect]
     Dosage: 30 MG
     Dates: start: 20060102, end: 20060108
  20. HALDOL [Concomitant]
  21. PSYCHOPAX [Concomitant]
  22. DOMINAL [Concomitant]
  23. ESCITALOPRAM OXALATE [Concomitant]
  24. KALIORAL [Concomitant]
  25. DEPAKINE CR [Concomitant]
  26. DOMINAL [Concomitant]
  27. GEWALCAM [Concomitant]
  28. CIPROXIN [Concomitant]
  29. TRITTICO RETARD [Concomitant]
  30. MOVICOL [Concomitant]

REACTIONS (3)
  - HEPATIC STEATOSIS [None]
  - HEPATOCELLULAR DAMAGE [None]
  - HYPERTRIGLYCERIDAEMIA [None]
